FAERS Safety Report 9849500 (Version 1)
Quarter: 2013Q4

REPORT INFORMATION
  Report Type: Spontaneous
  Country: US (occurrence: None)
  Receive Date: 20131226
  Receipt Date: 20131226
  Transmission Date: 20140711
  Serious: Yes (Other)
  Sender: FDA-Public Use
  Company Number: PHEH2013US013772

PATIENT
  Age: 70 Year
  Sex: Female

DRUGS (3)
  1. DIOVAN (VALSARTAN) [Suspect]
  2. VITAMIN D (ERGOCALCIFEROL) [Concomitant]
  3. MULTI-VIT (VITAMINS NOS) [Concomitant]

REACTIONS (2)
  - Renal failure [None]
  - Blood pressure increased [None]
